FAERS Safety Report 8944941 (Version 2)
Quarter: 2012Q4

REPORT INFORMATION
  Report Type: 
  Country: US (occurrence: US)
  Receive Date: 20121204
  Receipt Date: 20121206
  Transmission Date: 20130627
  Serious: No
  Sender: FDA-Public Use
  Company Number: US-009507513-1212USA000343

PATIENT

DRUGS (2)
  1. NEXPLANON [Suspect]
     Dosage: UNK
  2. NEXPLANON [Suspect]
     Dosage: UNK

REACTIONS (2)
  - Device difficult to use [Unknown]
  - Product quality issue [Unknown]
